FAERS Safety Report 12838549 (Version 1)
Quarter: 2016Q4

REPORT INFORMATION
  Report Type: Report from Study
  Country: CO (occurrence: CO)
  Receive Date: 20161012
  Receipt Date: 20161012
  Transmission Date: 20170207
  Serious: Yes (Hospitalization)
  Sender: FDA-Public Use
  Company Number: GB-TEVA-698582ACC

PATIENT
  Age: 56 Year
  Sex: Female
  Weight: 91.8 kg

DRUGS (17)
  1. PREDNISOLONE. [Suspect]
     Active Substance: PREDNISOLONE
     Dosage: 5 MILLIGRAM DAILY;
     Route: 065
     Dates: start: 20100916, end: 20100916
  2. PREDNISOLONE. [Suspect]
     Active Substance: PREDNISOLONE
     Dosage: 5 MILLIGRAM DAILY;
     Route: 065
     Dates: start: 20101206
  3. PREDNISOLONE. [Suspect]
     Active Substance: PREDNISOLONE
     Indication: RHEUMATOID ARTHRITIS
     Dosage: 10 MILLIGRAM DAILY;
     Route: 065
     Dates: start: 20060101, end: 20090820
  4. PREDNISONE. [Concomitant]
     Active Substance: PREDNISONE
     Dates: start: 2006
  5. CELECOXIB. [Suspect]
     Active Substance: CELECOXIB
     Indication: OSTEOARTHRITIS
     Route: 048
     Dates: start: 20090415, end: 20121008
  6. NEXIUM [Concomitant]
     Active Substance: ESOMEPRAZOLE MAGNESIUM
     Dates: start: 20090414
  7. PREDNISOLONE. [Suspect]
     Active Substance: PREDNISOLONE
     Indication: ARTHRALGIA
     Dosage: 20 MILLIGRAM DAILY;
     Route: 065
     Dates: start: 20090821, end: 20090825
  8. CELECOXIB. [Suspect]
     Active Substance: CELECOXIB
     Indication: RHEUMATOID ARTHRITIS
  9. METOCLOPRAMIDE. [Concomitant]
     Active Substance: METOCLOPRAMIDE
     Dates: start: 20101010, end: 20101104
  10. PREDNISOLONE. [Suspect]
     Active Substance: PREDNISOLONE
     Dosage: 10 MILLIGRAM DAILY;
     Route: 065
     Dates: start: 20101014, end: 20101014
  11. CLONIDINE. [Concomitant]
     Active Substance: CLONIDINE
     Dates: start: 20101014, end: 20101021
  12. PREDNISOLONE. [Suspect]
     Active Substance: PREDNISOLONE
     Dosage: 10 MILLIGRAM DAILY;
     Route: 065
     Dates: start: 20090826, end: 20100915
  13. VANCOMYCIN [Suspect]
     Active Substance: VANCOMYCIN
     Indication: PNEUMONIA KLEBSIELLA
     Dosage: 2 GRAM DAILY;
     Route: 042
     Dates: start: 20101018, end: 20101024
  14. MEROPENEM. [Suspect]
     Active Substance: MEROPENEM
     Indication: PNEUMONIA
     Dosage: 6 GRAM DAILY;
     Route: 042
     Dates: start: 20101014, end: 20101027
  15. LOVASTATIN. [Concomitant]
     Active Substance: LOVASTATIN
     Dates: start: 20090806
  16. FUROSEMIDE. [Concomitant]
     Active Substance: FUROSEMIDE
     Dates: start: 201006
  17. PREDNISOLONE. [Suspect]
     Active Substance: PREDNISOLONE
     Dosage: 5 MILLIGRAM DAILY;
     Route: 065
     Dates: start: 20101015, end: 20101019

REACTIONS (11)
  - Respiratory failure [Recovered/Resolved]
  - Pneumonia bacterial [Unknown]
  - Polyneuropathy [Not Recovered/Not Resolved]
  - Bacteraemia [Recovered/Resolved]
  - Myopathy [Not Recovered/Not Resolved]
  - Klebsiella infection [Recovered/Resolved]
  - Septic shock [Recovered/Resolved]
  - Pneumonia [Recovered/Resolved]
  - Thrombophlebitis septic [Recovering/Resolving]
  - Renal failure [Recovered/Resolved]
  - Phlebitis [Recovered/Resolved]

NARRATIVE: CASE EVENT DATE: 20100902
